FAERS Safety Report 16244826 (Version 1)
Quarter: 2019Q2

REPORT INFORMATION
  Report Type: Spontaneous
  Country: CA (occurrence: CA)
  Receive Date: 20190426
  Receipt Date: 20190426
  Transmission Date: 20190711
  Serious: Yes (Other)
  Sender: FDA-Public Use
  Company Number: CA-ELI_LILLY_AND_COMPANY-CA201904009394

PATIENT
  Age: 20 Month
  Sex: Female

DRUGS (6)
  1. GLUCAGON. [Suspect]
     Active Substance: GLUCAGON
     Indication: PRODUCT USED FOR UNKNOWN INDICATION
     Dosage: 0.12 MG/KG, UNKNOWN
     Route: 065
  2. PROPRANOLOL [Suspect]
     Active Substance: PROPRANOLOL HYDROCHLORIDE
     Dosage: 5.0 MG/KG, DAILY
     Route: 065
  3. DIGOXIN. [Concomitant]
     Active Substance: DIGOXIN
     Indication: NODAL ARRHYTHMIA
     Dosage: UNK, UNKNOWN
     Route: 065
  4. AMIODARONE [Concomitant]
     Active Substance: AMIODARONE
     Indication: NODAL ARRHYTHMIA
     Dosage: UNK, UNKNOWN
     Route: 065
  5. PROPRANOLOL [Suspect]
     Active Substance: PROPRANOLOL HYDROCHLORIDE
     Dosage: 5.0 MG/KG, DAILY
     Route: 065
  6. PROPRANOLOL [Suspect]
     Active Substance: PROPRANOLOL HYDROCHLORIDE
     Indication: NODAL ARRHYTHMIA
     Dosage: 5.0 MG/KG, DAILY
     Route: 065

REACTIONS (4)
  - Urine ketone body present [Recovered/Resolved]
  - Extra dose administered [Recovered/Resolved]
  - Hypoglycaemia [Recovered/Resolved]
  - Hypoglycaemic seizure [Recovered/Resolved]
